FAERS Safety Report 19985943 (Version 9)
Quarter: 2023Q1

REPORT INFORMATION
  Report Type: Report from Study
  Country: CN (occurrence: None)
  Receive Date: 20211022
  Receipt Date: 20230322
  Transmission Date: 20230418
  Serious: Yes (Death, Hospitalization)
  Sender: FDA-Public Use
  Company Number: CN-ROCHE-2931970

PATIENT
  Age: 62 Year
  Sex: Male
  Weight: 57 kg

DRUGS (33)
  1. ATEZOLIZUMAB [Suspect]
     Active Substance: ATEZOLIZUMAB
     Indication: Oesophageal squamous cell carcinoma metastatic
     Dosage: START DATE OF MOST RECENT DOSE OF STUDY DRUG PRIOR TO AE  AND SAE ON 17/SEP/2021
     Route: 041
     Dates: start: 20210827
  2. TIRAGOLUMAB [Suspect]
     Active Substance: TIRAGOLUMAB
     Indication: Oesophageal squamous cell carcinoma metastatic
     Dosage: START DATE OF MOST RECENT DOSE OF STUDY DRUG PRIOR TO AE AND SAE ON 17/SEP/2021
     Route: 042
     Dates: start: 20210827
  3. PACLITAXEL [Suspect]
     Active Substance: PACLITAXEL
     Indication: Oesophageal squamous cell carcinoma metastatic
     Dosage: START DATE OF MOST RECENT DOSE OF STUDY DRUG PRIOR TO AE AND SAE ON 17/SEP/2021?DOSE LAST STUDY DRUG
     Route: 042
     Dates: start: 20210827
  4. CISPLATIN [Suspect]
     Active Substance: CISPLATIN
     Indication: Oesophageal squamous cell carcinoma metastatic
     Dosage: START DATE OF MOST RECENT DOSE OF STUDY DRUG PRIOR TO AE AND SAE ON 17/SEP/2021?DOSE LAST STUDY DRUG
     Route: 042
     Dates: start: 20210827
  5. OMEPRAZOLE [Concomitant]
     Active Substance: OMEPRAZOLE
     Dates: start: 20210917, end: 20210917
  6. OMEPRAZOLE [Concomitant]
     Active Substance: OMEPRAZOLE
     Dates: start: 20211013, end: 20211016
  7. GLUTATHIONE [Concomitant]
     Active Substance: GLUTATHIONE
     Dates: start: 20210917, end: 20210917
  8. GLUTATHIONE [Concomitant]
     Active Substance: GLUTATHIONE
     Route: 042
     Dates: start: 20211014, end: 20211016
  9. SODIUM BICARBONATE [Concomitant]
     Active Substance: SODIUM BICARBONATE
     Dates: start: 20210917, end: 20210917
  10. PALONOSETRON [Concomitant]
     Active Substance: PALONOSETRON
     Dates: start: 20210917, end: 20210917
  11. INSULIN NOS [Concomitant]
     Active Substance: INSULIN NOS
     Dates: start: 20210917, end: 20210917
  12. INSULIN NOS [Concomitant]
     Active Substance: INSULIN NOS
     Dates: start: 20211014, end: 20211015
  13. INSULIN NOS [Concomitant]
     Active Substance: INSULIN NOS
     Dates: start: 20211014, end: 20211016
  14. INSULIN NOS [Concomitant]
     Active Substance: INSULIN NOS
     Dates: start: 20211015, end: 20211015
  15. MANNITOL [Concomitant]
     Active Substance: MANNITOL
     Indication: Dehydration
     Dates: start: 20210917, end: 20210917
  16. MANNITOL [Concomitant]
     Active Substance: MANNITOL
     Route: 042
     Dates: start: 20211016, end: 20211016
  17. MANNITOL [Concomitant]
     Active Substance: MANNITOL
     Route: 042
     Dates: start: 20211015, end: 20211015
  18. PROTHROMBIN [Concomitant]
     Active Substance: PROTHROMBIN
  19. HUMAN PLASMA [Concomitant]
     Active Substance: HUMAN PLASMA
  20. SODIUM CHLORIDE [Concomitant]
     Active Substance: SODIUM CHLORIDE
  21. PROTHROMBIN COMPLEX CONCENTRATE NOS [Concomitant]
     Active Substance: COAGULATION FACTOR IX HUMAN\COAGULATION FACTOR VII HUMAN\COAGULATION FACTOR X HUMAN\PROTHROMBIN
  22. ADEMETIONINE [Concomitant]
     Active Substance: ADEMETIONINE
     Route: 042
     Dates: start: 20211014, end: 20211016
  23. DEXTROSE [Concomitant]
     Active Substance: DEXTROSE
     Dates: start: 20211014, end: 20211015
  24. VITAMIN K1 [Concomitant]
     Active Substance: PHYTONADIONE
     Dates: start: 20211015, end: 20211016
  25. MOXALACTAM [Concomitant]
     Active Substance: MOXALACTAM
     Dates: start: 20211015, end: 20211016
  26. DEXAMETHASONE [Concomitant]
     Active Substance: DEXAMETHASONE
     Route: 048
     Dates: start: 20210916, end: 20210916
  27. PANTOPRAZOLE [Concomitant]
     Active Substance: PANTOPRAZOLE
     Dates: start: 20210916, end: 20210916
  28. DIPHENHYDRAMINE [Concomitant]
     Active Substance: DIPHENHYDRAMINE
     Dates: start: 20210917, end: 20210917
  29. DEXTROSE\SODIUM CHLORIDE [Concomitant]
     Active Substance: DEXTROSE\SODIUM CHLORIDE
     Dates: start: 20210917, end: 20210917
  30. HYDROXYETHYL STARCH AND SODIUM CHLORIDE [Concomitant]
     Dates: start: 20211016, end: 20211016
  31. DOPAMINE HYDROCHLORIDE [Concomitant]
     Active Substance: DOPAMINE HYDROCHLORIDE
     Route: 042
     Dates: start: 20211016, end: 20211016
  32. CALCIUM GLUCONATE [Concomitant]
     Active Substance: CALCIUM GLUCONATE
     Dates: start: 20211016, end: 20211016
  33. WHOLE BLOOD [Concomitant]
     Active Substance: WHOLE BLOOD
     Route: 042
     Dates: start: 20211016, end: 20211016

REACTIONS (1)
  - Hepatic failure [Fatal]

NARRATIVE: CASE EVENT DATE: 20211008
